FAERS Safety Report 21676315 (Version 2)
Quarter: 2024Q2

REPORT INFORMATION
  Report Type: Spontaneous
  Country: US (occurrence: US)
  Receive Date: 20221202
  Receipt Date: 20240424
  Transmission Date: 20240716
  Serious: No
  Sender: FDA-Public Use
  Company Number: US-MYLANLABS-2022M1131741

PATIENT
  Sex: Female
  Weight: 53.07 kg

DRUGS (1)
  1. GABAPENTIN [Suspect]
     Active Substance: GABAPENTIN
     Indication: Pain
     Dosage: 800 MILLIGRAM, BID (AS NEEDED)
     Route: 065

REACTIONS (2)
  - Off label use [Unknown]
  - Intentional product misuse [Unknown]
